FAERS Safety Report 23825784 (Version 9)
Quarter: 2024Q4

REPORT INFORMATION
  Report Type: Spontaneous
  Country: US (occurrence: US)
  Receive Date: 20240507
  Receipt Date: 20241205
  Transmission Date: 20250114
  Serious: Yes (Hospitalization, Other)
  Sender: BRISTOL-MYERS SQUIBB COMPANY
  Company Number: US-BRISTOL-MYERS SQUIBB COMPANY-2024-069902

PATIENT
  Age: 73 Year
  Sex: Female
  Weight: 70.31 kg

DRUGS (4)
  1. REVLIMID [Suspect]
     Active Substance: LENALIDOMIDE
     Indication: Plasma cell myeloma
     Dosage: 2 WEEKS ON, 1WEEK OFF
     Route: 048
     Dates: start: 20231017
  2. REVLIMID [Suspect]
     Active Substance: LENALIDOMIDE
     Dosage: DAILY FOR 14 DAYS ON, THEN 14 DAYS OFF
     Route: 048
  3. REVLIMID [Suspect]
     Active Substance: LENALIDOMIDE
     Dosage: 1 CAPSULE DAILY FOR 14 DAYS, THEN 7 DAYS OFF
     Route: 048
     Dates: start: 20241022
  4. REVLIMID [Suspect]
     Active Substance: LENALIDOMIDE
     Dosage: 2 WEEKS ON, 1WEEK OFF
     Route: 048

REACTIONS (22)
  - Pneumonia [Unknown]
  - Off label use [Unknown]
  - Skin infection [Recovering/Resolving]
  - Constipation [Unknown]
  - Rosacea [Unknown]
  - Joint swelling [Unknown]
  - Dysphonia [Not Recovered/Not Resolved]
  - Platelet count decreased [Unknown]
  - Blood calcium decreased [Unknown]
  - Red blood cell count decreased [Unknown]
  - White blood cell count decreased [Unknown]
  - Muscle spasms [Unknown]
  - Rhinorrhoea [Unknown]
  - Cough [Unknown]
  - Peripheral coldness [Unknown]
  - Tinnitus [Unknown]
  - Decreased appetite [Unknown]
  - Weight decreased [Unknown]
  - Memory impairment [Unknown]
  - Full blood count decreased [Not Recovered/Not Resolved]
  - Amnesia [Not Recovered/Not Resolved]
  - Upper-airway cough syndrome [Unknown]

NARRATIVE: CASE EVENT DATE: 20241001
